FAERS Safety Report 9798124 (Version 1)
Quarter: 2014Q1

REPORT INFORMATION
  Report Type: Spontaneous
  Country: US (occurrence: US)
  Receive Date: 20140106
  Receipt Date: 20140106
  Transmission Date: 20141002
  Serious: Yes (Life-Threatening, Hospitalization)
  Sender: FDA-Public Use
  Company Number: US-SA-2014SA000205

PATIENT
  Age: 33 Year
  Sex: Female
  Weight: 119.65 kg

DRUGS (3)
  1. HECTOROL [Suspect]
     Indication: HYPERPARATHYROIDISM
     Route: 042
     Dates: start: 20131213
  2. EPOGEN [Concomitant]
  3. VENOFER [Concomitant]

REACTIONS (2)
  - Throat tightness [Recovering/Resolving]
  - Dyspnoea [Recovering/Resolving]
